FAERS Safety Report 4895292-9 (Version None)
Quarter: 2005Q4

REPORT INFORMATION
  Report Type: 
  Country: None (occurrence: None)
  Receive Date: 20051221
  Receipt Date: 20051018
  Transmission Date: 20060501
  Serious: No
  Sender: FDA-Public Use
  Company Number: US-YAMANOUCHI-YPA20050553

PATIENT
  Age: 86 Year
  Sex: Female

DRUGS (7)
  1. VESICARE [Suspect]
     Indication: STRESS INCONTINENCE
     Dosage: 5 MG
     Dates: start: 20050401, end: 20050501
  2. VESICARE [Suspect]
     Indication: STRESS INCONTINENCE
     Dates: start: 20050101
  3. LIPITOR [Concomitant]
  4. AVESTIA [Concomitant]
  5. VIODEN [Concomitant]
  6. ACTONEL [Concomitant]
  7. HYDRODIURIL [Concomitant]

REACTIONS (1)
  - URINARY RETENTION [None]
